FAERS Safety Report 8219495-0 (Version None)
Quarter: 2012Q1

REPORT INFORMATION
  Report Type: 
  Country: None (occurrence: None)
  Receive Date: 20120319
  Receipt Date: 20120315
  Transmission Date: 20120608
  Serious: Yes (Other)
  Sender: FDA-Public Use
  Company Number: US-AMGEN-USASP2012016978

PATIENT
  Age: 79 Year
  Sex: Female

DRUGS (3)
  1. PROLIA [Suspect]
     Indication: OSTEOPOROSIS
     Dates: start: 20120105
  2. CALCIUM WITH VITAMIN D             /00944201/ [Concomitant]
  3. TOPROL-XL [Concomitant]

REACTIONS (4)
  - HYPOAESTHESIA [None]
  - INJECTION SITE PAIN [None]
  - PAIN IN EXTREMITY [None]
  - INJECTION SITE DISCOLOURATION [None]
